FAERS Safety Report 10256633 (Version 1)
Quarter: 2014Q2

REPORT INFORMATION
  Report Type: Report from Study
  Country: FR (occurrence: FR)
  Receive Date: 20140624
  Receipt Date: 20140624
  Transmission Date: 20141212
  Serious: Yes (Death, Life-Threatening, Other)
  Sender: FDA-Public Use
  Company Number: FR-TEVA-490001USA

PATIENT
  Sex: 0

DRUGS (3)
  1. BENDAMUSTINE HYDROCHLORIDE [Suspect]
     Indication: PLASMA CELL MYELOMA
     Dosage: 70 MG/M2, CYCLIC ON DAY 1 AND 8 FOR 6 CYCLES AND EVERY 2 MONTHS FOR 6 ADDITIONAL CYCLES
     Route: 042
  2. BORTEZOMIB [Suspect]
     Indication: PLASMA CELL MYELOMA
     Dosage: 1.3 MG/M2, OTHER 1 IN 28 DAYS
     Route: 042
  3. DEXAMETHASONE [Suspect]
     Indication: PLASMA CELL MYELOMA
     Dosage: 20 MG, UNK 1 IN 28 DAYS
     Route: 048

REACTIONS (23)
  - Disease progression [Fatal]
  - Toxicity to various agents [Fatal]
  - Renal failure [Fatal]
  - Infection [Fatal]
  - Arterial thrombosis [Unknown]
  - Thrombosis [Unknown]
  - Deep vein thrombosis [Unknown]
  - Pulmonary embolism [Unknown]
  - Neuropathy peripheral [Unknown]
  - Syncope [Unknown]
  - Pancreatitis [Unknown]
  - Pulmonary fibrosis [Unknown]
  - Arrhythmia [Unknown]
  - Cardiac failure [Unknown]
  - Diarrhoea [Unknown]
  - Neutropenia [Unknown]
  - Thrombocytopenia [Unknown]
  - Anaemia [Unknown]
  - Hypersensitivity [Unknown]
  - Fatigue [Unknown]
  - Liver function test abnormal [Unknown]
  - Nausea [Unknown]
  - Vomiting [Unknown]
